FAERS Safety Report 11958225 (Version 1)
Quarter: 2016Q1

REPORT INFORMATION
  Report Type: Spontaneous
  Country: CA (occurrence: CA)
  Receive Date: 20160126
  Receipt Date: 20160126
  Transmission Date: 20160526
  Serious: Yes (Other)
  Sender: FDA-Public Use
  Company Number: CA-ROCHE-1699343

PATIENT
  Age: 27 Year
  Sex: Female

DRUGS (1)
  1. NAPROXEN. [Suspect]
     Active Substance: NAPROXEN
     Indication: PRODUCT USED FOR UNKNOWN INDICATION
     Dosage: FREQUENCY AND THERAPY DURATION:  ONCE
     Route: 048

REACTIONS (3)
  - Throat irritation [Unknown]
  - Lip swelling [Unknown]
  - Urticaria [Unknown]
